FAERS Safety Report 20502023 (Version 1)
Quarter: 2022Q1

REPORT INFORMATION
  Report Type: Spontaneous
  Country: US (occurrence: US)
  Receive Date: 20220222
  Receipt Date: 20220222
  Transmission Date: 20220423
  Serious: No
  Sender: FDA-Public Use
  Company Number: US-TOLMAR, INC.-21US031093

PATIENT
  Age: 52 Year
  Sex: Female

DRUGS (2)
  1. ELIGARD [Suspect]
     Active Substance: LEUPROLIDE ACETATE
     Indication: Breast cancer
     Dosage: 45 MILLIGRAM
     Dates: start: 20210405
  2. ELIGARD [Suspect]
     Active Substance: LEUPROLIDE ACETATE
     Dosage: 45 MILLIGRAM

REACTIONS (4)
  - Intercepted product preparation error [Unknown]
  - Off label use [Unknown]
  - Syringe issue [Unknown]
  - Device leakage [Unknown]

NARRATIVE: CASE EVENT DATE: 20210405
